FAERS Safety Report 21114821 (Version 18)
Quarter: 2025Q2

REPORT INFORMATION
  Report Type: Spontaneous
  Country: US (occurrence: US)
  Receive Date: 20220721
  Receipt Date: 20250519
  Transmission Date: 20250716
  Serious: Yes (Hospitalization, Other)
  Sender: PFIZER
  Company Number: US-PFIZER INC-PV202200027486

PATIENT
  Age: 62 Year
  Sex: Female

DRUGS (3)
  1. IBRANCE [Suspect]
     Active Substance: PALBOCICLIB
     Dates: start: 20220719
  2. IBRANCE [Suspect]
     Active Substance: PALBOCICLIB
     Dates: start: 20220804
  3. LYRICA [Concomitant]
     Active Substance: PREGABALIN

REACTIONS (19)
  - Hypertensive urgency [Unknown]
  - Peripheral swelling [Unknown]
  - Pulmonary embolism [Unknown]
  - Oedema peripheral [Unknown]
  - Dizziness [Unknown]
  - Nausea [Unknown]
  - Dyspnoea [Unknown]
  - Swelling [Unknown]
  - Abdominal discomfort [Recovered/Resolved]
  - Fatigue [Unknown]
  - Bone pain [Unknown]
  - Myalgia [Unknown]
  - Nail growth abnormal [Unknown]
  - Asthenia [Unknown]
  - Chest discomfort [Unknown]
  - Hair growth rate abnormal [Unknown]
  - Upper respiratory tract infection [Recovering/Resolving]
  - Infective glossitis [Not Recovered/Not Resolved]
  - Alopecia [Unknown]

NARRATIVE: CASE EVENT DATE: 20220101
